FAERS Safety Report 16929166 (Version 3)
Quarter: 2019Q4

REPORT INFORMATION
  Report Type: Report from Study
  Country: BR (occurrence: BR)
  Receive Date: 20191017
  Receipt Date: 20191107
  Transmission Date: 20200122
  Serious: Yes (Death, Hospitalization, Other)
  Sender: FDA-Public Use
  Company Number: NVSC2019BR004304

PATIENT
  Age: 88 Year
  Sex: Male
  Weight: 70 kg

DRUGS (1)
  1. EXELON PATCH [Suspect]
     Active Substance: RIVASTIGMINE
     Indication: DEMENTIA WITH LEWY BODIES
     Dosage: UNK
     Route: 062
     Dates: start: 201908

REACTIONS (8)
  - Cerebrovascular accident [Fatal]
  - Hemiplegia [Fatal]
  - Aphasia [Fatal]
  - Dysphagia [Fatal]
  - Ischaemic stroke [Fatal]
  - Pneumonia aspiration [Fatal]
  - Cognitive disorder [Fatal]
  - Sepsis [Fatal]

NARRATIVE: CASE EVENT DATE: 201909
